FAERS Safety Report 24947891 (Version 1)
Quarter: 2025Q1

REPORT INFORMATION
  Report Type: Other
  Country: IT (occurrence: IT)
  Receive Date: 20250210
  Receipt Date: 20250210
  Transmission Date: 20250409
  Serious: Yes (Death, Other)
  Sender: APPCO PHARMA LLC
  Company Number: IT-Appco Pharma LLC-2170852

PATIENT
  Age: 38 Year
  Sex: Female
  Weight: 85.6 kg

DRUGS (2)
  1. CHLORPROMAZINE [Suspect]
     Active Substance: CHLORPROMAZINE
     Indication: Schizoaffective disorder
  2. PERICIAZINE [Suspect]
     Active Substance: PERICIAZINE

REACTIONS (2)
  - Choking [Fatal]
  - Dysphagia [Fatal]
